FAERS Safety Report 7586269-3 (Version None)
Quarter: 2011Q3

REPORT INFORMATION
  Report Type: 
  Country: None (occurrence: None)
  Receive Date: 20110701
  Receipt Date: 20110622
  Transmission Date: 20111222
  Serious: Yes (Hospitalization, Other)
  Sender: FDA-Public Use
  Company Number: CA-ABBOTT-10P-028-0648995-02

PATIENT
  Sex: Male
  Weight: 64 kg

DRUGS (22)
  1. PREDNISONE [Concomitant]
     Dates: start: 20091203, end: 20091216
  2. AZATHIOPRINE [Concomitant]
     Dates: start: 20091203
  3. AZATHIOPRINE [Concomitant]
     Indication: CROHN'S DISEASE
     Dates: start: 19960101, end: 20091202
  4. DIAZEPAM [Concomitant]
     Indication: SIGMOIDOSCOPY
  5. DEMEROL [Concomitant]
     Indication: PAIN
     Dates: start: 20110516
  6. HUMIRA [Suspect]
     Indication: CROHN'S DISEASE
     Route: 058
     Dates: start: 20090107, end: 20100120
  7. PREDNISONE [Concomitant]
     Dates: start: 20100826, end: 20100905
  8. PREDNISONE [Concomitant]
     Dates: start: 20100907, end: 20101004
  9. PREDNISONE [Concomitant]
     Dates: start: 20101005, end: 20101101
  10. PREDNISONE [Concomitant]
     Dates: start: 20101102, end: 20101129
  11. PREDNISONE [Concomitant]
     Dates: start: 20091217, end: 20091230
  12. CIPROFLOXACIN HCL [Concomitant]
     Indication: CROHN'S DISEASE
     Dates: start: 20080301, end: 20110301
  13. FLAGYL [Concomitant]
     Indication: ANAL ABSCESS
     Dates: start: 20091121, end: 20100701
  14. MORPHINE [Concomitant]
     Indication: CROHN'S DISEASE
  15. DEMEROL [Concomitant]
     Indication: CROHN'S DISEASE
  16. PREDNISONE [Concomitant]
     Indication: CROHN'S DISEASE
     Dates: end: 20081001
  17. SOLU-MEDROL [Concomitant]
     Indication: CROHN'S DISEASE
  18. BUDESONIDE [Concomitant]
     Indication: CROHN'S DISEASE
     Dosage: PHYSICIAN ORDERED DISCONTINUATION
     Dates: end: 20081001
  19. SOLU-MEDROL [Concomitant]
     Indication: INTESTINAL OBSTRUCTION
     Dates: start: 20090813, end: 20090814
  20. HUMIRA [Suspect]
     Route: 058
     Dates: start: 20100602
  21. MORPHINE [Concomitant]
     Indication: PAIN
     Dates: start: 20080901, end: 20110515
  22. DIAZEPAM [Concomitant]
     Indication: SEDATION
     Dates: start: 20091118, end: 20091118

REACTIONS (2)
  - FISTULA [None]
  - ANAL ABSCESS [None]
